FAERS Safety Report 12955859 (Version 2)
Quarter: 2016Q4

REPORT INFORMATION
  Report Type: Report from Study
  Country: US (occurrence: US)
  Receive Date: 20161118
  Receipt Date: 20161205
  Transmission Date: 20170207
  Serious: Yes (Other)
  Sender: FDA-Public Use
  Company Number: US-PFIZER INC-2016531464

PATIENT
  Age: 62 Year
  Sex: Male

DRUGS (2)
  1. SUTENT [Suspect]
     Active Substance: SUNITINIB MALATE
     Indication: RENAL CELL CARCINOMA
     Dosage: 37.5 MG, CYCLIC (ONCE DAILY FOR 14 DAYS)
     Route: 048
     Dates: start: 20160226, end: 20161111
  2. SUTENT [Suspect]
     Active Substance: SUNITINIB MALATE
     Dosage: 37.5 MG, CYCLIC
     Route: 048
     Dates: start: 20161122

REACTIONS (12)
  - Skin fragility [Unknown]
  - Skin haemorrhage [Unknown]
  - Pulmonary thrombosis [Unknown]
  - Asthenia [Unknown]
  - Diarrhoea [Not Recovered/Not Resolved]
  - Decreased appetite [Unknown]
  - Fatigue [Unknown]
  - Blister [Unknown]
  - Dysgeusia [Unknown]
  - Stomatitis [Not Recovered/Not Resolved]
  - Increased tendency to bruise [Unknown]
  - Hypertension [Unknown]
